FAERS Safety Report 8986571 (Version 1)
Quarter: 2012Q4

REPORT INFORMATION
  Report Type: Report from Study
  Country: US (occurrence: US)
  Receive Date: 20121227
  Receipt Date: 20121227
  Transmission Date: 20130627
  Serious: Yes (Hospitalization)
  Sender: FDA-Public Use
  Company Number: US-JNJFOC-20121209151

PATIENT
  Age: 47 Year
  Sex: Male
  Weight: 104.33 kg

DRUGS (14)
  1. PALIPERIDONE [Suspect]
     Indication: SCHIZOPHRENIA, PARANOID TYPE
     Route: 048
     Dates: start: 20111021
  2. PALIPERIDONE [Suspect]
     Indication: SCHIZOPHRENIA, PARANOID TYPE
     Route: 048
     Dates: start: 20120706
  3. PALIPERIDONE [Suspect]
     Indication: SCHIZOPHRENIA, PARANOID TYPE
     Route: 048
     Dates: start: 20120206, end: 20120213
  4. PALIPERIDONE [Suspect]
     Indication: SCHIZOPHRENIA
     Route: 048
     Dates: start: 20120706
  5. PALIPERIDONE [Suspect]
     Indication: SCHIZOPHRENIA
     Route: 048
     Dates: start: 20120206, end: 20120213
  6. PALIPERIDONE [Suspect]
     Indication: SCHIZOPHRENIA
     Route: 048
     Dates: start: 20111021
  7. TYLENOL [Concomitant]
     Indication: PAIN
     Route: 065
     Dates: start: 201206
  8. ATIVAN [Concomitant]
     Indication: ANXIETY
     Route: 065
     Dates: start: 20120729, end: 20120828
  9. ATIVAN [Concomitant]
     Indication: ANXIETY
     Route: 065
     Dates: start: 20120208
  10. LEXAPRO [Concomitant]
     Indication: DEPRESSION
     Route: 065
     Dates: start: 20120210, end: 20120827
  11. CLONIDINE [Concomitant]
     Indication: BLOOD PRESSURE INCREASED
     Route: 065
     Dates: start: 201206
  12. MILK OF MAGNESIA [Concomitant]
     Indication: CONSTIPATION
     Route: 065
     Dates: start: 201206
  13. DIOCTYL SODIUM SULFOSUCCINATE [Concomitant]
     Indication: CONSTIPATION
     Route: 065
     Dates: start: 201206, end: 20121012
  14. SEROQUEL [Concomitant]
     Indication: PSYCHOTIC DISORDER
     Route: 065
     Dates: start: 20120208

REACTIONS (1)
  - Cellulitis [Recovered/Resolved]
